FAERS Safety Report 20451022 (Version 1)
Quarter: 2022Q1

REPORT INFORMATION
  Report Type: Spontaneous
  Country: US (occurrence: None)
  Receive Date: 20220209
  Receipt Date: 20220209
  Transmission Date: 20220423
  Serious: Yes (Other)
  Sender: FDA-Public Use
  Company Number: None

PATIENT
  Age: 32 Year
  Sex: Female
  Weight: 62.55 kg

DRUGS (5)
  1. SERTRALINE HYDROCHLORIDE [Suspect]
     Active Substance: SERTRALINE HYDROCHLORIDE
     Indication: Perinatal depression
     Dates: start: 20220103, end: 20220201
  2. Prenatal multivitamin [Concomitant]
  3. VITAMIN D [Concomitant]
     Active Substance: VITAMIN D NOS
  4. ZINC [Concomitant]
     Active Substance: ZINC
  5. MAGNESIUM [Concomitant]
     Active Substance: MAGNESIUM

REACTIONS (5)
  - Depression [None]
  - Anxiety [None]
  - Self-injurious ideation [None]
  - Product dispensing error [None]
  - Product label on wrong product [None]

NARRATIVE: CASE EVENT DATE: 20220102
